FAERS Safety Report 9280279 (Version 1)
Quarter: 2013Q2

REPORT INFORMATION
  Report Type: Spontaneous
  Country: US (occurrence: None)
  Receive Date: 20130507
  Receipt Date: 20130507
  Transmission Date: 20140414
  Serious: No
  Sender: FDA-Public Use
  Company Number: None

PATIENT
  Sex: Female

DRUGS (1)
  1. NODOZ [Suspect]
     Indication: MOTION SICKNESS

REACTIONS (1)
  - Gastrooesophageal reflux disease [None]
